FAERS Safety Report 5086428-8 (Version None)
Quarter: 2006Q3

REPORT INFORMATION
  Report Type: 
  Country: None (occurrence: None)
  Receive Date: 20060703
  Receipt Date: 20060324
  Transmission Date: 20061208
  Serious: No
  Sender: FDA-Public Use
  Company Number: 2006S1002615

PATIENT
  Age: 73 Year
  Sex: Male

DRUGS (4)
  1. CLOZAPINE [Suspect]
     Indication: PSYCHOTIC DISORDER
     Dosage: 100 MG;HS;ORAL
     Route: 048
     Dates: start: 20040716
  2. MIRTAZAPINE [Concomitant]
  3. FENOFIBRATE [Concomitant]
  4. SIMVASTATIN [Concomitant]

REACTIONS (2)
  - GRANULOCYTOPENIA [None]
  - LEUKOPENIA [None]
